FAERS Safety Report 4389091-4 (Version None)
Quarter: 2004Q2

REPORT INFORMATION
  Report Type: 
  Country: None (occurrence: None)
  Receive Date: 20040624
  Receipt Date: 20040611
  Transmission Date: 20050107
  Serious: Yes (Other)
  Sender: FDA-Public Use
  Company Number: 2004038659

PATIENT
  Age: 35 Year
  Sex: Male
  Weight: 63.5036 kg

DRUGS (4)
  1. NEURONTIN [Suspect]
     Indication: REFLEX SYMPATHETIC DYSTROPHY
     Dosage: ORAL
     Route: 048
     Dates: start: 19980801
  2. OMEPRAZOLE [Concomitant]
  3. PARACETAMOL (PARACETAMOL) [Concomitant]
  4. NAPROXEN SODIUM [Concomitant]

REACTIONS (6)
  - LOCALISED INFECTION [None]
  - PHARMACEUTICAL PRODUCT COMPLAINT [None]
  - PHARYNGEAL NEOPLASM BENIGN [None]
  - SCAR [None]
  - SKIN INFECTION [None]
  - STAPHYLOCOCCAL INFECTION [None]
